FAERS Safety Report 25971472 (Version 1)
Quarter: 2025Q4

REPORT INFORMATION
  Report Type: Spontaneous
  Country: US (occurrence: US)
  Receive Date: 20251028
  Receipt Date: 20251028
  Transmission Date: 20260118
  Serious: No
  Sender: BRISTOL-MYERS SQUIBB COMPANY
  Company Number: US-BRISTOL-MYERS SQUIBB COMPANY-2025-144538

PATIENT
  Age: 73 Year
  Sex: Female

DRUGS (2)
  1. ELIQUIS [Suspect]
     Active Substance: APIXABAN
     Indication: Product used for unknown indication
     Dosage: ELIQUIS FOR ALMOST 4 MONTHS
  2. ASPIRIN [Concomitant]
     Active Substance: ASPIRIN
     Indication: Arthritis

REACTIONS (2)
  - Arthralgia [Unknown]
  - Pain in extremity [Unknown]
